FAERS Safety Report 6304714-8 (Version None)
Quarter: 2009Q3

REPORT INFORMATION
  Report Type: 
  Country: None (occurrence: None)
  Receive Date: 20090811
  Receipt Date: 20090804
  Transmission Date: 20100115
  Serious: Yes (Hospitalization)
  Sender: FDA-Public Use
  Company Number: A0795057A

PATIENT
  Age: 52 Year
  Sex: Male

DRUGS (3)
  1. TYKERB [Suspect]
     Dosage: 1250MG PER DAY
     Route: 048
     Dates: start: 20090618
  2. XELODA [Suspect]
     Route: 065
     Dates: start: 20090618
  3. BLOOD PRESSURE MEDICATION [Suspect]

REACTIONS (9)
  - BRONCHITIS [None]
  - DIARRHOEA [None]
  - DRUG ADMINISTRATION ERROR [None]
  - DYSPHAGIA [None]
  - FATIGUE [None]
  - HYPOTENSION [None]
  - NAUSEA [None]
  - VOMITING [None]
  - WRONG TECHNIQUE IN DRUG USAGE PROCESS [None]
